FAERS Safety Report 23383451 (Version 3)
Quarter: 2024Q2

REPORT INFORMATION
  Report Type: Spontaneous
  Country: JP (occurrence: JP)
  Receive Date: 20240109
  Receipt Date: 20240411
  Transmission Date: 20240716
  Serious: Yes (Hospitalization, Other)
  Sender: FDA-Public Use
  Company Number: JP-ONO-2024JP000218

PATIENT
  Age: 57 Year
  Sex: Male
  Weight: 54.3 kg

DRUGS (6)
  1. OPDIVO [Suspect]
     Active Substance: NIVOLUMAB
     Indication: Oesophageal carcinoma
     Route: 041
     Dates: start: 20230508, end: 20230605
  2. TWINLINE NF [Concomitant]
     Indication: Product used for unknown indication
     Dosage: 400 MILLILITER, Q12H, AS NEEDED, ADMINISTRATION ROUTE: ENTERAL
     Route: 050
     Dates: start: 202304
  3. LANSOPRAZOLE [Concomitant]
     Active Substance: LANSOPRAZOLE
     Indication: Product used for unknown indication
     Dosage: 30 MG, EVERYDAY, AFTER BREAKFAST
     Route: 048
     Dates: start: 202304
  4. CODEINE PHOSPHATE [Concomitant]
     Active Substance: CODEINE PHOSPHATE
     Indication: Product used for unknown indication
     Dosage: 20 MG, Q8H, AFTER EVERY MEAL. CODEINE PHOSPHATE HYDRATE
     Route: 048
     Dates: start: 202304
  5. REBAMIPIDE [Concomitant]
     Active Substance: REBAMIPIDE
     Indication: Product used for unknown indication
     Dosage: 100 MG, EVERYDAY, AFTER BREAKFAST, START DATE OF ADMINISTRATION: SINCE BEFORE APR 2023
     Route: 048
  6. CELECOXIB [Concomitant]
     Active Substance: CELECOXIB
     Indication: Product used for unknown indication
     Dosage: 100 MG, Q12H, AFTER BREAKFAST AND DINNER, START DATE OF ADMINISTRATION: SINCE BEFORE APR 2023
     Route: 048

REACTIONS (1)
  - Immune-mediated enterocolitis [Recovered/Resolved]

NARRATIVE: CASE EVENT DATE: 20230613
